FAERS Safety Report 17156666 (Version 2)
Quarter: 2020Q1

REPORT INFORMATION
  Report Type: Spontaneous
  Country: JP (occurrence: JP)
  Receive Date: 20191216
  Receipt Date: 20200220
  Transmission Date: 20200409
  Serious: Yes (Death, Life-Threatening, Hospitalization, Disabling, Other)
  Sender: FDA-Public Use
  Company Number: JP-SAKK-2018SA320002AA

PATIENT
  Age: 8 Year
  Sex: Female
  Weight: 22.7 kg

DRUGS (7)
  1. ASPARA POTASSIUM [Concomitant]
     Active Substance: POTASSIUM ASPARTATE
     Indication: PRODUCT USED FOR UNKNOWN INDICATION
     Dosage: 2.66 G, TID
     Route: 050
     Dates: start: 20181002, end: 20191206
  2. THYRADIN S [Concomitant]
     Active Substance: LEVOTHYROXINE SODIUM
     Indication: PRODUCT USED FOR UNKNOWN INDICATION
     Dosage: 75 UG, QD
     Route: 050
     Dates: start: 20180926, end: 20191208
  3. CORTRIL [Concomitant]
     Active Substance: HYDROCORTISONE
     Indication: PRODUCT USED FOR UNKNOWN INDICATION
     Dosage: 5-10MG BID
     Route: 050
     Dates: start: 20181005, end: 20191204
  4. SODIUM CHLORIDE. [Concomitant]
     Active Substance: SODIUM CHLORIDE
     Indication: PRODUCT USED FOR UNKNOWN INDICATION
     Dosage: 2 G, TID
     Route: 050
     Dates: start: 20181004, end: 20191205
  5. MINIRIN [Concomitant]
     Active Substance: DESMOPRESSIN ACETATE
     Indication: PRODUCT USED FOR UNKNOWN INDICATION
     Dosage: 30-60 UG/0-2 TIMES, 0-2 TIMES/DAY
     Route: 050
     Dates: start: 20181002, end: 20191205
  6. ALDURAZYME [Suspect]
     Active Substance: LARONIDASE
     Indication: MUCOPOLYSACCHARIDOSIS I
     Dosage: 11.6 MG, QW
     Route: 041
     Dates: start: 20180511, end: 20191128
  7. FUROSEMIDE. [Concomitant]
     Active Substance: FUROSEMIDE
     Indication: PRODUCT USED FOR UNKNOWN INDICATION
     Dosage: 3.5 MG, BID
     Route: 050
     Dates: start: 20181010, end: 20191205

REACTIONS (19)
  - Asthenia [Fatal]
  - Feeding disorder [Fatal]
  - Functional gastrointestinal disorder [Fatal]
  - Diabetes insipidus [Fatal]
  - Hypoxic-ischaemic encephalopathy [Fatal]
  - Disease progression [Fatal]
  - Metabolic acidosis [Fatal]
  - Hyperamylasaemia [Fatal]
  - Hypopituitarism [Fatal]
  - Cardio-respiratory arrest [Fatal]
  - Malnutrition [Fatal]
  - Electrolyte imbalance [Fatal]
  - Infection [Fatal]
  - Hyponatraemia [Fatal]
  - Oedema [Fatal]
  - Upper airway obstruction [Fatal]
  - Multiple organ dysfunction syndrome [Fatal]
  - Hypokalaemia [Fatal]
  - Neurogenic bladder [Fatal]

NARRATIVE: CASE EVENT DATE: 20180721
